FAERS Safety Report 6633426-6 (Version None)
Quarter: 2010Q1

REPORT INFORMATION
  Report Type: 
  Country: None (occurrence: None)
  Receive Date: 20100312
  Receipt Date: 20090602
  Transmission Date: 20100710
  Serious: No
  Sender: FDA-Public Use
  Company Number: US-ABBOTT-09P-163-0577719-00

PATIENT
  Sex: Female
  Weight: 53.118 kg

DRUGS (5)
  1. ERYTHROMYCIN BASE [Suspect]
     Indication: DERMATITIS CONTACT
     Dates: start: 20090516, end: 20090524
  2. ERYTHROMYCIN BASE [Suspect]
     Dates: start: 20090524
  3. BENADRYL [Concomitant]
     Indication: RASH
  4. STEROID CREAM [Concomitant]
     Indication: DRUG USE FOR UNKNOWN INDICATION
     Route: 061
  5. MULTIPLE UN-NAMED VITAMINS [Concomitant]
     Indication: DRUG USE FOR UNKNOWN INDICATION

REACTIONS (3)
  - OEDEMA PERIPHERAL [None]
  - RASH [None]
  - RASH ERYTHEMATOUS [None]
